FAERS Safety Report 17254209 (Version 1)
Quarter: 2020Q1

REPORT INFORMATION
  Report Type: Spontaneous
  Country: US (occurrence: US)
  Receive Date: 20200109
  Receipt Date: 20200109
  Transmission Date: 20200409
  Serious: No
  Sender: FDA-Public Use
  Company Number: US-009507513-2001USA001139

PATIENT
  Sex: Female

DRUGS (7)
  1. ASMANEX [Suspect]
     Active Substance: MOMETASONE FUROATE
     Dosage: 2 DOSAGE FORM, QD (2 PUFFS DAILY)
     Route: 055
     Dates: start: 20200103
  2. COZAAR [Concomitant]
     Active Substance: LOSARTAN POTASSIUM
  3. METOPROLOL. [Concomitant]
     Active Substance: METOPROLOL
  4. AMLODIPINE [Concomitant]
     Active Substance: AMLODIPINE BESYLATE
  5. ASMANEX [Suspect]
     Active Substance: MOMETASONE FUROATE
     Dosage: 2 DOSAGE FORM, QD (2 PUFFS DAILY)
     Route: 055
     Dates: start: 20191017, end: 2019
  6. ASMANEX [Suspect]
     Active Substance: MOMETASONE FUROATE
     Dosage: 2 DOSAGE FORM, QD (2 PUFFS DAILY)
     Route: 055
     Dates: start: 20191217
  7. ASMANEX [Suspect]
     Active Substance: MOMETASONE FUROATE
     Indication: ASTHMA
     Dosage: 2 DOSAGE FORM, QD (2 PUFFS DAILY)
     Route: 055
     Dates: start: 2005

REACTIONS (5)
  - Product quality issue [Unknown]
  - Product dose omission [Unknown]
  - Chest discomfort [Recovering/Resolving]
  - Incorrect product administration duration [Unknown]
  - Poor quality device used [Unknown]

NARRATIVE: CASE EVENT DATE: 2019
